FAERS Safety Report 5318877-4 (Version None)
Quarter: 2007Q2

REPORT INFORMATION
  Report Type: 
  Country: None (occurrence: None)
  Receive Date: 20070508
  Receipt Date: 20070427
  Transmission Date: 20071010
  Serious: Yes (Hospitalization)
  Sender: FDA-Public Use
  Company Number: JP-ROCHE-486814

PATIENT
  Age: 12 Year
  Sex: Female

DRUGS (2)
  1. TAMIFLU [Suspect]
     Indication: INFLUENZA
     Route: 048
     Dates: start: 20070223, end: 20070223
  2. ANHIBA [Concomitant]
     Route: 054

REACTIONS (2)
  - ABNORMAL BEHAVIOUR [None]
  - DIZZINESS [None]
